FAERS Safety Report 10758465 (Version 2)
Quarter: 2015Q1

REPORT INFORMATION
  Report Type: Report from Study
  Country: US (occurrence: US)
  Receive Date: 20150203
  Receipt Date: 20150217
  Transmission Date: 20150721
  Serious: Yes (Hospitalization)
  Sender: FDA-Public Use
  Company Number: US-ACTELION-A-US2015-111810

PATIENT
  Age: 83 Year
  Sex: Female

DRUGS (15)
  1. ACITRETIN. [Concomitant]
     Active Substance: ACITRETIN
     Dosage: 10 MG, UNK
  2. FENOFIBRIC ACID. [Concomitant]
     Active Substance: FENOFIBRIC ACID
     Dosage: 105 MG, UNK
  3. FLUCONAZOLE. [Concomitant]
     Active Substance: FLUCONAZOLE
     Dosage: 100 MG, UNK
  4. BACTRIM [Concomitant]
     Active Substance: SULFAMETHOXAZOLE\TRIMETHOPRIM
     Dosage: 400 MG-80 MG
  5. POTASSIUM [Concomitant]
     Active Substance: POTASSIUM
     Dosage: 99 MG, UNK
  6. MECHLORETHAMINE [Suspect]
     Active Substance: MECHLORETHAMINE
     Indication: ANAPLASTIC LARGE CELL LYMPHOMA T- AND NULL-CELL TYPES
     Dosage: 0.016 %, QD
     Route: 061
     Dates: start: 20141223
  7. VITAMIN E-100 [Concomitant]
     Dosage: 100 U, UNK
  8. ASPIRIN. [Concomitant]
     Active Substance: ASPIRIN
     Dosage: 51 MG, UNK
  9. LOSARTAN POTASSIUM. [Concomitant]
     Active Substance: LOSARTAN POTASSIUM
     Dosage: 100 MG, UNK
  10. DEXAMETHASONE. [Concomitant]
     Active Substance: DEXAMETHASONE
     Dosage: 0.5 MG, UNK
  11. NIACIN. [Concomitant]
     Active Substance: NIACIN
     Dosage: 100 MG, UNK
  12. VITAMIN C [Concomitant]
     Active Substance: ASCORBIC ACID
     Dosage: 1000 MG, UNK
  13. ZETIA [Concomitant]
     Active Substance: EZETIMIBE
     Dosage: 10 MG, UNK
  14. MECHLORETHAMINE [Suspect]
     Active Substance: MECHLORETHAMINE
     Dosage: 2-3 TIMES
     Route: 061
  15. OMEGA 3 [Concomitant]
     Active Substance: OMEGA-3 FATTY ACIDS
     Dosage: 684-1200 MG

REACTIONS (4)
  - Cardiac flutter [Recovered/Resolved]
  - Skin discolouration [Recovered/Resolved]
  - Fatigue [Recovered/Resolved]
  - Pruritus [Recovered/Resolved]

NARRATIVE: CASE EVENT DATE: 20150119
